FAERS Safety Report 7393871-0 (Version None)
Quarter: 2011Q1

REPORT INFORMATION
  Report Type: 
  Country: None (occurrence: None)
  Receive Date: 20110330
  Receipt Date: 20110330
  Transmission Date: 20110831
  Serious: Yes (Other)
  Sender: FDA-Public Use
  Company Number: None

PATIENT
  Age: 26 Year
  Sex: Female
  Weight: 53.0709 kg

DRUGS (2)
  1. VYVANSE [Suspect]
     Indication: ATTENTION DEFICIT/HYPERACTIVITY DISORDER
     Dosage: 1 1/DAILY PO
     Route: 048
     Dates: start: 20110322, end: 20110329
  2. CITALOPRAM HYDROBROMIDE [Suspect]
     Indication: ANXIETY DISORDER
     Dosage: 1 1/DAILY PO
     Route: 048
     Dates: start: 20110322, end: 20110324

REACTIONS (13)
  - ANXIETY [None]
  - FEELING DRUNK [None]
  - TREMOR [None]
  - EXPRESSIVE LANGUAGE DISORDER [None]
  - THOUGHT BLOCKING [None]
  - CONFUSIONAL STATE [None]
  - CONDITION AGGRAVATED [None]
  - DIZZINESS [None]
  - MEMORY IMPAIRMENT [None]
  - FATIGUE [None]
  - INSOMNIA [None]
  - DECREASED APPETITE [None]
  - FEELING ABNORMAL [None]
